FAERS Safety Report 5929364-4 (Version None)
Quarter: 2008Q4

REPORT INFORMATION
  Report Type: 
  Country: None (occurrence: None)
  Receive Date: 20081020
  Receipt Date: 20081006
  Transmission Date: 20090506
  Serious: Yes (Other)
  Sender: FDA-Public Use
  Company Number: 107#03#2008-01922

PATIENT
  Age: 54 Year
  Sex: Male

DRUGS (1)
  1. MIRTAZAPINE [Suspect]
     Indication: DRUG USE FOR UNKNOWN INDICATION
     Dosage: 15 MG, INCREASED TO 30 MG
     Dates: start: 20070201, end: 20070608

REACTIONS (8)
  - ABNORMAL DREAMS [None]
  - AGGRESSION [None]
  - ALCOHOL INTERACTION [None]
  - DEPRESSION [None]
  - HOMICIDE [None]
  - JOINT SWELLING [None]
  - OEDEMA PERIPHERAL [None]
  - SLEEP DISORDER [None]
